FAERS Safety Report 9819123 (Version 1)
Quarter: 2014Q1

REPORT INFORMATION
  Report Type: Spontaneous
  Country: ES (occurrence: ES)
  Receive Date: 20140115
  Receipt Date: 20140115
  Transmission Date: 20141002
  Serious: Yes (Hospitalization, Other)
  Sender: FDA-Public Use
  Company Number: ES-ASTRAZENECA-2014SE01810

PATIENT
  Age: 77 Year
  Sex: Male

DRUGS (3)
  1. PULMICORT TBH [Suspect]
     Route: 055
     Dates: start: 201204, end: 201204
  2. FLUMIL [Suspect]
     Route: 048
     Dates: start: 201204, end: 201204
  3. ATROVENT [Suspect]
     Route: 048
     Dates: start: 201204, end: 201204

REACTIONS (2)
  - Dyspnoea [Recovered/Resolved]
  - Drug intolerance [Recovered/Resolved]
